FAERS Safety Report 21043180 (Version 2)
Quarter: 2022Q3

REPORT INFORMATION
  Report Type: Spontaneous
  Country: US (occurrence: US)
  Receive Date: 20220705
  Receipt Date: 20220826
  Transmission Date: 20221027
  Serious: No
  Sender: FDA-Public Use
  Company Number: US-JNJFOC-20220703298

PATIENT
  Age: 69 Year
  Sex: Female

DRUGS (1)
  1. ZYRTEC [Suspect]
     Active Substance: CETIRIZINE HYDROCHLORIDE
     Indication: Seasonal allergy
     Dosage: PRODUCT START DATE: APPROX 24-25-JUNE-2022
     Route: 048
     Dates: start: 202206, end: 202206

REACTIONS (1)
  - Pruritus [Recovered/Resolved]

NARRATIVE: CASE EVENT DATE: 20220601
